FAERS Safety Report 8885601 (Version 6)
Quarter: 2013Q2

REPORT INFORMATION
  Report Type: Spontaneous
  Country: US (occurrence: US)
  Receive Date: 20121101
  Receipt Date: 20130523
  Transmission Date: 20140414
  Serious: No
  Sender: FDA-Public Use
  Company Number: US-PFIZER INC-2012268865

PATIENT
  Age: 59 Year
  Sex: Female
  Weight: 74.83 kg

DRUGS (3)
  1. SUTENT [Suspect]
     Indication: PRIMITIVE NEUROECTODERMAL TUMOUR
     Dosage: 37.5 MG DAILY
     Dates: start: 20120821
  2. SANDOSTATIN [Concomitant]
     Dosage: UNK, Q MONTH
  3. OS-CAL [Concomitant]
     Dosage: UNK, 1X/DAY (DAILY)

REACTIONS (20)
  - Epistaxis [Unknown]
  - Throat irritation [Unknown]
  - Paraesthesia oral [Unknown]
  - Dry mouth [Unknown]
  - Dysgeusia [Unknown]
  - Pain in jaw [Unknown]
  - Insomnia [Unknown]
  - Oesophageal pain [Unknown]
  - Glossodynia [Unknown]
  - Weight decreased [Unknown]
  - Skin discolouration [Unknown]
  - Capillary fragility [Recovered/Resolved]
  - Thrombosis [Recovered/Resolved]
  - Influenza like illness [Unknown]
  - Headache [Unknown]
  - Chills [Unknown]
  - Skin fissures [Unknown]
  - Skin exfoliation [Unknown]
  - Skin haemorrhage [Unknown]
  - Skin discolouration [Unknown]
